FAERS Safety Report 9789788 (Version 2)
Quarter: 2014Q1

REPORT INFORMATION
  Report Type: Spontaneous
  Country: DE (occurrence: DE)
  Receive Date: 20131231
  Receipt Date: 20140203
  Transmission Date: 20141002
  Serious: Yes (Hospitalization, Congenital Anomaly, Other)
  Sender: FDA-Public Use
  Company Number: DE-RANBAXY-2013RR-76624

PATIENT
  Age: 1 Day
  Sex: Male
  Weight: 2.98 kg

DRUGS (4)
  1. OLANZAPINE [Suspect]
     Indication: SCHIZOPHRENIA
     Dosage: 20 MG/DAY, DURING GESTATIONAL WEEKS 0-36.6
     Route: 064
  2. LORAZEPAM [Suspect]
     Indication: SCHIZOPHRENIA
     Dosage: 4 MG/DAY, DURING GESTATIONAL WEEKS 0-36.6
     Route: 064
  3. DOPEGYT [Concomitant]
     Indication: HYPERTENSION
     Dosage: DURING GESTATIONAL WEEKS 0-36.6
     Route: 064
  4. AMOXICILLIN [Concomitant]
     Indication: BACTERIAL INFECTION
     Dosage: UNK
     Route: 064

REACTIONS (6)
  - Hypotonia neonatal [Unknown]
  - Retrognathia [Unknown]
  - Feeding disorder neonatal [Recovered/Resolved]
  - Blood creatine phosphokinase MB increased [Recovered/Resolved]
  - Myoglobin blood increased [Recovered/Resolved]
  - Blood lactate dehydrogenase increased [Recovered/Resolved]
